FAERS Safety Report 8029666-4 (Version None)
Quarter: 2012Q1

REPORT INFORMATION
  Report Type: 
  Country: None (occurrence: None)
  Receive Date: 20120109
  Receipt Date: 20120104
  Transmission Date: 20120608
  Serious: Yes (Other)
  Sender: FDA-Public Use
  Company Number: US-PFIZER INC-2011291623

PATIENT
  Sex: Female
  Weight: 61.224 kg

DRUGS (5)
  1. ATIVAN [Suspect]
     Indication: VENTRICULAR TACHYCARDIA
     Dosage: 0.5 MG, 1X/DAY
  2. AROMASIN [Suspect]
     Indication: BREAST CANCER STAGE I
     Dosage: 25 MG, DAILY
     Dates: start: 20111201
  3. ATIVAN [Suspect]
     Dosage: UNK
  4. CORGARD [Suspect]
     Indication: VENTRICULAR TACHYCARDIA
     Dosage: UNK, 1X/DAY
  5. CORGARD [Suspect]
     Dosage: UNK

REACTIONS (5)
  - BURNING SENSATION [None]
  - BREAST CANCER [None]
  - FUNGAL INFECTION [None]
  - ABDOMINAL DISTENSION [None]
  - MUSCLE SPASMS [None]
